FAERS Safety Report 4852606-3 (Version None)
Quarter: 2005Q4

REPORT INFORMATION
  Report Type: 
  Country: None (occurrence: None)
  Receive Date: 20051213
  Receipt Date: 20030407
  Transmission Date: 20060501
  Serious: Yes (Hospitalization, Other)
  Sender: FDA-Public Use
  Company Number: US-MERCK-0304USA00826

PATIENT
  Age: 72 Year
  Sex: Female
  Weight: 81 kg

DRUGS (25)
  1. VIOXX [Suspect]
     Indication: OSTEOARTHRITIS
     Route: 048
     Dates: start: 20010911, end: 20010925
  2. VIOXX [Suspect]
     Route: 048
     Dates: start: 20010605, end: 20010611
  3. VIOXX [Suspect]
     Route: 048
     Dates: start: 20010101, end: 20010911
  4. GLYBURIDE [Concomitant]
     Indication: DIABETES MELLITUS NON-INSULIN-DEPENDENT
     Route: 065
     Dates: start: 19980101
  5. ZOCOR [Concomitant]
     Route: 048
  6. NEURONTIN [Concomitant]
     Route: 065
  7. TEMAZEPAM [Concomitant]
     Route: 065
  8. NAPROSYN [Concomitant]
     Indication: ARTHRITIS
     Route: 065
     Dates: start: 19880101, end: 20010605
  9. NAPROSYN [Concomitant]
     Route: 065
     Dates: start: 20010611
  10. MAXZIDE [Concomitant]
     Route: 065
     Dates: start: 19980101
  11. BETA CAROTENE [Concomitant]
     Route: 065
  12. VERAPAMIL [Concomitant]
     Route: 065
  13. GINKGO BILOBA EXTRACT [Concomitant]
     Route: 065
  14. GARLIC EXTRACT [Concomitant]
     Route: 065
  15. VITAMIN E [Concomitant]
     Route: 065
  16. PYRIDOXINE [Concomitant]
     Route: 065
  17. VITAMINS (UNSPECIFIED) [Concomitant]
     Route: 065
  18. ATROVENT [Concomitant]
     Route: 065
  19. VICODIN [Concomitant]
     Route: 065
  20. LORAZEPAM [Concomitant]
     Route: 065
  21. ZYRTEC [Concomitant]
     Route: 065
  22. FLONASE [Concomitant]
     Route: 065
  23. ALTACE [Concomitant]
     Route: 065
  24. CALAN [Concomitant]
     Route: 065
  25. OCUVITE [Concomitant]
     Route: 065

REACTIONS (45)
  - ABASIA [None]
  - ANHEDONIA [None]
  - ANXIETY [None]
  - ASTHENIA [None]
  - BACK PAIN [None]
  - CATARACT [None]
  - CEREBROVASCULAR ACCIDENT [None]
  - CHRONIC FATIGUE SYNDROME [None]
  - CONFUSIONAL STATE [None]
  - CORONARY ARTERY DISEASE [None]
  - DEPRESSION [None]
  - DIASTOLIC DYSFUNCTION [None]
  - DISTURBANCE IN ATTENTION [None]
  - DIZZINESS [None]
  - DYSPNOEA [None]
  - FUNGAL INFECTION [None]
  - GENERAL PHYSICAL HEALTH DETERIORATION [None]
  - GLOSSITIS [None]
  - HEART RATE INCREASED [None]
  - HERPES ZOSTER [None]
  - HYPERTENSION [None]
  - HYPERVENTILATION [None]
  - HYPOACUSIS [None]
  - INJURY [None]
  - LOSS OF LIBIDO [None]
  - MACULAR DEGENERATION [None]
  - MITRAL VALVE INCOMPETENCE [None]
  - MYOCARDIAL INFARCTION [None]
  - NAUSEA [None]
  - NEPHROLITHIASIS [None]
  - OEDEMA PERIPHERAL [None]
  - OSTEOARTHRITIS [None]
  - PALPITATIONS [None]
  - PANIC ATTACK [None]
  - PERSONALITY DISORDER [None]
  - POST-TRAUMATIC STRESS DISORDER [None]
  - PSYCHIATRIC SYMPTOM [None]
  - SINUS BRADYCARDIA [None]
  - SLEEP APNOEA SYNDROME [None]
  - SLEEP DISORDER [None]
  - SUICIDAL IDEATION [None]
  - SYNCOPE [None]
  - TREMOR [None]
  - TRICUSPID VALVE INCOMPETENCE [None]
  - TRIGGER FINGER [None]
